FAERS Safety Report 17640645 (Version 1)
Quarter: 2020Q2

REPORT INFORMATION
  Report Type: Spontaneous
  Country: FR (occurrence: FR)
  Receive Date: 20200408
  Receipt Date: 20200408
  Transmission Date: 20200713
  Serious: Yes (Other)
  Sender: FDA-Public Use
  Company Number: FR-AUROBINDO-AUR-APL-2020-016752

PATIENT
  Age: 80 Year
  Sex: Female

DRUGS (4)
  1. VANCOMYCIN [Suspect]
     Active Substance: VANCOMYCIN
     Indication: ANTIBIOTIC PROPHYLAXIS
     Dosage: 3 GRAM, ONCE A DAY (1 GR AT 10:00, 2 GR AT SAP)
     Route: 042
     Dates: start: 20200210, end: 20200211
  2. TAZOCILLINE [Suspect]
     Active Substance: PIPERACILLIN SODIUM\TAZOBACTAM SODIUM
     Indication: ANTIBIOTIC PROPHYLAXIS
     Dosage: 12 GRAM, ONCE A DAY (4 GR AT 10:10 AM, 2:10 PM, 5:00 PM)
     Route: 042
     Dates: start: 20200210, end: 20200210
  3. OCTREOTIDE SOLUTION FOR INJECTION [Suspect]
     Active Substance: OCTREOTIDE
     Indication: PRODUCT USED FOR UNKNOWN INDICATION
     Dosage: UNK , 2, ONCE A DAY (1 INJECTION AT 12:20 P.M. AND 7:00 P.M)
     Route: 042
     Dates: start: 20200210, end: 20200211
  4. PARACETAMOL [Suspect]
     Active Substance: ACETAMINOPHEN
     Indication: PAIN
     Dosage: UNK
     Route: 042
     Dates: start: 20200210, end: 20200211

REACTIONS (1)
  - Thrombocytopenia [Recovered/Resolved]

NARRATIVE: CASE EVENT DATE: 20200210
